FAERS Safety Report 4623246-6 (Version None)
Quarter: 2005Q1

REPORT INFORMATION
  Report Type: 
  Country: None (occurrence: None)
  Receive Date: 20050329
  Receipt Date: 20050317
  Transmission Date: 20050727
  Serious: Yes (Other)
  Sender: FDA-Public Use
  Company Number: US014890

PATIENT
  Age: 54 Year
  Sex: Male

DRUGS (11)
  1. GABITRIL [Suspect]
     Indication: GENERALISED ANXIETY DISORDER
     Dosage: 2 MG QD ORAL
     Route: 048
     Dates: start: 20050225, end: 20050101
  2. GABITRIL [Suspect]
     Indication: INSOMNIA
     Dosage: 2 MG QD ORAL
     Route: 048
     Dates: start: 20050225, end: 20050101
  3. GABITRIL [Suspect]
     Indication: GENERALISED ANXIETY DISORDER
     Dosage: 4 MG QHS ORAL
     Route: 048
     Dates: start: 20050101, end: 20050101
  4. GABITRIL [Suspect]
     Indication: INSOMNIA
     Dosage: 4 MG QHS ORAL
     Route: 048
     Dates: start: 20050101, end: 20050101
  5. GABITRIL [Suspect]
     Indication: GENERALISED ANXIETY DISORDER
     Dosage: 2 MG TID ORAL
     Route: 048
     Dates: start: 20050101, end: 20050101
  6. GABITRIL [Suspect]
     Indication: INSOMNIA
     Dosage: 2 MG TID ORAL
     Route: 048
     Dates: start: 20050101, end: 20050101
  7. LAMICTAL [Concomitant]
  8. SEROQUEL [Concomitant]
  9. LEXAPRO [Concomitant]
  10. TRAZODONE HCL [Concomitant]
  11. TOPROL-XL [Concomitant]

REACTIONS (2)
  - COMA [None]
  - EYE ROLLING [None]
